FAERS Safety Report 9916704 (Version 1)
Quarter: 2014Q1

REPORT INFORMATION
  Report Type: Spontaneous
  Country: FR (occurrence: FR)
  Receive Date: 20140221
  Receipt Date: 20140221
  Transmission Date: 20141002
  Serious: Yes (Hospitalization)
  Sender: FDA-Public Use
  Company Number: FR-PFIZER INC-2014047019

PATIENT
  Age: 86 Year
  Sex: Female

DRUGS (10)
  1. DOSTINEX [Suspect]
     Dosage: 1 DF, ALTERNATE DAY (EVERY 2 DAYS)
     Route: 048
     Dates: start: 20140110, end: 20140114
  2. PREVISCAN [Suspect]
     Indication: DEEP VEIN THROMBOSIS
     Dosage: 0.75 DF, DAILY
     Route: 048
     Dates: start: 20131121, end: 20140116
  3. HYDROCORTISONE [Concomitant]
     Dosage: 10 MG, 2X/DAY
  4. LEVOTHYROX [Concomitant]
     Dosage: 25 UG, DAILY
  5. ATACAND [Concomitant]
     Dosage: 8 MG, 1X/DAY
  6. ZOCOR [Concomitant]
     Dosage: 40 MG, 1X/DAY
  7. ACTONEL [Concomitant]
     Dosage: 35 MG, WEEKLY
  8. UVEDOSE [Concomitant]
     Dosage: 1 DF, EVERY 3 MONTHS
  9. OROCAL VITAMIN D [Concomitant]
     Dosage: 1 DF, DAILY
  10. TOCO [Concomitant]
     Dosage: 500 MG, 1X/DAY

REACTIONS (3)
  - Drug reaction with eosinophilia and systemic symptoms [Recovering/Resolving]
  - Hepatocellular injury [Recovering/Resolving]
  - Renal failure [Recovering/Resolving]
